FAERS Safety Report 12602808 (Version 1)
Quarter: 2016Q3

REPORT INFORMATION
  Report Type: Spontaneous
  Country: US (occurrence: US)
  Receive Date: 20160728
  Receipt Date: 20160728
  Transmission Date: 20161109
  Serious: No
  Sender: FDA-Public Use
  Company Number: US-MYLANLABS-2016M1002228

PATIENT
  Age: 54 Year
  Sex: Female

DRUGS (2)
  1. DOXYCYCLINE HYCLATE CAPSULES, USP [Suspect]
     Active Substance: DOXYCYCLINE HYCLATE
     Indication: OFF LABEL USE
  2. DOXYCYCLINE HYCLATE CAPSULES, USP [Suspect]
     Active Substance: DOXYCYCLINE HYCLATE
     Indication: ROSACEA
     Dosage: 100 MG, ONCE
     Route: 048
     Dates: start: 20160102, end: 20160103

REACTIONS (2)
  - Diarrhoea [Recovered/Resolved]
  - Abdominal pain [Recovered/Resolved]

NARRATIVE: CASE EVENT DATE: 20160102
